FAERS Safety Report 10885185 (Version 1)
Quarter: 2015Q1

REPORT INFORMATION
  Report Type: Spontaneous
  Country: US (occurrence: US)
  Receive Date: 20150304
  Receipt Date: 20150304
  Transmission Date: 20150721
  Serious: Yes (Death)
  Sender: FDA-Public Use
  Company Number: US-BANPHARM-20153605

PATIENT
  Age: 37 Year
  Sex: Female

DRUGS (4)
  1. DIPHENHYDRAMINE UNKNOWN PRODUCT [Suspect]
     Active Substance: DIPHENHYDRAMINE
  2. COCAINE [Suspect]
     Active Substance: COCAINE
  3. ETHANOL [Suspect]
     Active Substance: ALCOHOL
  4. DOXEPIN [Suspect]
     Active Substance: DOXEPIN

REACTIONS (1)
  - Death [Fatal]
